FAERS Safety Report 9204433 (Version 2)
Quarter: 2013Q3

REPORT INFORMATION
  Report Type: Spontaneous
  Country: US (occurrence: US)
  Receive Date: 20130402
  Receipt Date: 20130817
  Transmission Date: 20140515
  Serious: Yes (Hospitalization, Other)
  Sender: FDA-Public Use
  Company Number: US-ROCHE-596096

PATIENT
  Age: 29 Year
  Sex: Female
  Weight: 63.5 kg

DRUGS (2)
  1. ACCUTANE [Suspect]
     Indication: ACNE
     Route: 065
     Dates: start: 20000317, end: 200008
  2. ORTHO TRI-CYCLEN [Concomitant]

REACTIONS (10)
  - Colitis [Unknown]
  - Crohn^s disease [Unknown]
  - Small intestinal obstruction [Unknown]
  - Inflammatory bowel disease [Unknown]
  - Anal abscess [Unknown]
  - Arthralgia [Unknown]
  - Mood swings [Unknown]
  - Dry eye [Unknown]
  - Nasal dryness [Unknown]
  - Rash pustular [Unknown]
